FAERS Safety Report 25013993 (Version 15)
Quarter: 2025Q3

REPORT INFORMATION
  Report Type: Report from Study
  Country: CO (occurrence: CO)
  Receive Date: 20250226
  Receipt Date: 20250918
  Transmission Date: 20251021
  Serious: Yes (Death, Hospitalization, Other)
  Sender: TAKEDA
  Company Number: CO-TAKEDA-2025TUS020471

PATIENT
  Age: 36 Year
  Sex: Female
  Weight: 21 kg

DRUGS (6)
  1. VEDOLIZUMAB [Suspect]
     Active Substance: VEDOLIZUMAB
     Indication: Colitis ulcerative
  2. VEDOLIZUMAB [Suspect]
     Active Substance: VEDOLIZUMAB
     Indication: Colitis ulcerative
     Dosage: 108 MILLIGRAM, Q2WEEKS
     Dates: start: 20250714
  3. VEDOLIZUMAB [Suspect]
     Active Substance: VEDOLIZUMAB
  4. VEDOLIZUMAB [Suspect]
     Active Substance: VEDOLIZUMAB
  5. VEDOLIZUMAB [Suspect]
     Active Substance: VEDOLIZUMAB
  6. OXYGEN [Concomitant]
     Active Substance: OXYGEN

REACTIONS (33)
  - Death [Fatal]
  - Abdominal pain [Not Recovered/Not Resolved]
  - Colitis ulcerative [Not Recovered/Not Resolved]
  - Malnutrition [Not Recovered/Not Resolved]
  - Malabsorption [Not Recovered/Not Resolved]
  - Cystic fibrosis [Not Recovered/Not Resolved]
  - Anal fistula [Unknown]
  - Diarrhoea infectious [Not Recovered/Not Resolved]
  - Oral disorder [Unknown]
  - Blood pressure decreased [Unknown]
  - Diarrhoea [Unknown]
  - Colonic fistula [Not Recovered/Not Resolved]
  - Eschar [Unknown]
  - Hypoxia [Unknown]
  - Oxygen saturation decreased [Unknown]
  - Mouth haemorrhage [Unknown]
  - Dyspnoea [Unknown]
  - Asthenia [Not Recovered/Not Resolved]
  - Abdominal distension [Not Recovered/Not Resolved]
  - Pneumonia [Unknown]
  - Back pain [Unknown]
  - Bronchitis [Unknown]
  - Fatigue [Not Recovered/Not Resolved]
  - Gastrointestinal disorder [Unknown]
  - Gastrointestinal wall thickening [Unknown]
  - Frequent bowel movements [Unknown]
  - Tooth loss [Unknown]
  - Wound infection [Unknown]
  - Pain [Recovering/Resolving]
  - Fear of injection [Unknown]
  - Decubitus ulcer [Unknown]
  - Chest pain [Recovering/Resolving]
  - Tachycardia [Unknown]

NARRATIVE: CASE EVENT DATE: 20250220
